FAERS Safety Report 8995657 (Version 1)
Quarter: 2013Q1

REPORT INFORMATION
  Report Type: Spontaneous
  Country: None (occurrence: US)
  Receive Date: 20130103
  Receipt Date: 20130103
  Transmission Date: 20140127
  Serious: No
  Sender: FDA-Public Use
  Company Number: US-ABBOTT-12P-163-0976996-00

PATIENT
  Sex: Female
  Weight: 49.94 kg

DRUGS (3)
  1. SYNTHROID [Suspect]
     Indication: RADIOTHERAPY TO THYROID
     Route: 048
     Dates: start: 201206
  2. SYNTHROID [Suspect]
     Route: 048
     Dates: end: 201208
  3. PROTONIX [Concomitant]
     Indication: PRODUCT USED FOR UNKNOWN INDICATION

REACTIONS (5)
  - Gastrooesophageal reflux disease [Not Recovered/Not Resolved]
  - Dyspnoea [Not Recovered/Not Resolved]
  - Dysphagia [Not Recovered/Not Resolved]
  - Gastrointestinal disorder [Unknown]
  - Feeling abnormal [Unknown]
